FAERS Safety Report 8074226-2 (Version None)
Quarter: 2012Q1

REPORT INFORMATION
  Report Type: 
  Country: None (occurrence: None)
  Receive Date: 20120126
  Receipt Date: 20120118
  Transmission Date: 20120608
  Serious: Yes (Hospitalization)
  Sender: FDA-Public Use
  Company Number: US-PURDUE-USA-2012-0081057

PATIENT
  Sex: Male

DRUGS (2)
  1. HYDROCODONE [Suspect]
     Indication: PRODUCT USED FOR UNKNOWN INDICATION
  2. BUTRANS [Suspect]
     Indication: PRODUCT USED FOR UNKNOWN INDICATION
     Dosage: 20 MCG, Q1H
     Route: 062

REACTIONS (7)
  - MIGRAINE [None]
  - VISUAL IMPAIRMENT [None]
  - APPLICATION SITE PAIN [None]
  - DRUG INTERACTION [None]
  - SYNCOPE [None]
  - HEADACHE [None]
  - PHOTOPHOBIA [None]
